FAERS Safety Report 6408565-5 (Version None)
Quarter: 2009Q4

REPORT INFORMATION
  Report Type: 
  Country: None (occurrence: None)
  Receive Date: 20091009
  Receipt Date: 20090915
  Transmission Date: 20100525
  Serious: Yes (Hospitalization)
  Sender: FDA-Public Use
  Company Number: 2009278721

PATIENT
  Age: 51 Year
  Sex: Male

DRUGS (4)
  1. FRAGMIN [Suspect]
     Indication: THROMBOSIS PROPHYLAXIS
     Dosage: 1 DF, SUBCUTANEOUS
     Route: 058
     Dates: start: 20090706, end: 20090722
  2. AUGMENTIN '125' [Concomitant]
  3. CEFAZOLIN SODIUM [Concomitant]
  4. TORADOL [Concomitant]

REACTIONS (3)
  - DEEP VEIN THROMBOSIS [None]
  - PULMONARY EMBOLISM [None]
  - PULMONARY INFARCTION [None]
